FAERS Safety Report 6823202-3 (Version None)
Quarter: 2010Q3

REPORT INFORMATION
  Report Type: 
  Country: None (occurrence: None)
  Receive Date: 20100708
  Receipt Date: 20100623
  Transmission Date: 20110219
  Serious: Yes (Hospitalization, Other)
  Sender: FDA-Public Use
  Company Number: US-SHIRE-SPV1-2010-01159

PATIENT
  Age: 17 Year
  Sex: Male

DRUGS (2)
  1. INTUNIV [Suspect]
     Indication: ATTENTION DEFICIT/HYPERACTIVITY DISORDER
     Dosage: 21 MG, ONE DOSE
     Route: 048
     Dates: start: 20100623
  2. INTUNIV [Suspect]
     Dosage: 3 MG, 1X/DAY:QD
     Route: 048

REACTIONS (1)
  - INTENTIONAL OVERDOSE [None]
